FAERS Safety Report 5224043-3 (Version None)
Quarter: 2007Q1

REPORT INFORMATION
  Report Type: 
  Country: None (occurrence: None)
  Receive Date: 20070126
  Receipt Date: 20070112
  Transmission Date: 20070707
  Serious: Yes (Life-Threatening, Hospitalization, Other)
  Sender: FDA-Public Use
  Company Number: VER_0038_2007

PATIENT
  Age: 16 Year
  Sex: Male

DRUGS (2)
  1. EPINEPHRINE [Suspect]
     Indication: ANAPHYLACTIC REACTION
     Dosage: 0.3 MG PRN SC
     Route: 058
     Dates: start: 20070101
  2. EPINEPHRINE [Suspect]
     Indication: FOOD ALLERGY
     Dosage: 0.3 MG PRN SC
     Route: 058
     Dates: start: 20070101

REACTIONS (1)
  - DEVICE MALFUNCTION [None]
